FAERS Safety Report 22129110 (Version 1)
Quarter: 2023Q1

REPORT INFORMATION
  Report Type: Spontaneous
  Country: IN (occurrence: None)
  Receive Date: 20230323
  Receipt Date: 20230323
  Transmission Date: 20230418
  Serious: Yes (Hospitalization, Other)
  Sender: FDA-Public Use
  Company Number: IN-ADIENNEP-2023AD000243

PATIENT
  Sex: Female

DRUGS (7)
  1. THIOTEPA [Suspect]
     Active Substance: THIOTEPA
     Indication: Allogenic stem cell transplantation
  2. FLUDARABINE [Suspect]
     Active Substance: FLUDARABINE PHOSPHATE
     Indication: Allogenic stem cell transplantation
  3. TREOSULFAN [Suspect]
     Active Substance: TREOSULFAN
     Indication: Allogenic stem cell transplantation
  4. THYMOCYTE IMMUNE GLOBULIN NOS [Suspect]
     Active Substance: THYMOCYTE IMMUNE GLOBULIN NOS
     Indication: Allogenic stem cell transplantation
  5. TACROLIMUS [Suspect]
     Active Substance: TACROLIMUS
  6. MYCOPHENOLATE MOFETIL [Suspect]
     Active Substance: MYCOPHENOLATE MOFETIL
  7. GRANULOCYTE COLONY-STIMULATING FACTOR NOS [Suspect]
     Active Substance: GRANULOCYTE COLONY-STIMULATING FACTOR NOS

REACTIONS (10)
  - Disseminated Bacillus Calmette-Guerin infection [Recovered/Resolved]
  - Disseminated Bacillus Calmette-Guerin infection [Recovered/Resolved]
  - Neutropenia [Unknown]
  - Vaccination site swelling [Recovered/Resolved]
  - Vaccination site abscess [Recovered/Resolved]
  - Pyrexia [Recovered/Resolved]
  - Hepatosplenomegaly [Recovering/Resolving]
  - Respiratory distress [Recovering/Resolving]
  - White blood cell count increased [Unknown]
  - Immune reconstitution inflammatory syndrome [Unknown]
